FAERS Safety Report 16691397 (Version 1)
Quarter: 2019Q3

REPORT INFORMATION
  Report Type: Spontaneous
  Country: FR (occurrence: FR)
  Receive Date: 20190812
  Receipt Date: 20190812
  Transmission Date: 20191004
  Serious: Yes (Hospitalization)
  Sender: FDA-Public Use
  Company Number: FR-ZYDUS-039632

PATIENT
  Age: 29 Year
  Sex: Female
  Weight: 80 kg

DRUGS (2)
  1. ZOPICLONE [Suspect]
     Active Substance: ZOPICLONE
     Indication: POISONING DELIBERATE
     Route: 048
     Dates: start: 20190123, end: 20190123
  2. PAROXETINE. [Suspect]
     Active Substance: PAROXETINE
     Indication: POISONING DELIBERATE
     Route: 048
     Dates: start: 20190123, end: 20190123

REACTIONS (2)
  - Tachycardia [Recovered/Resolved]
  - Disturbance in attention [Recovered/Resolved]

NARRATIVE: CASE EVENT DATE: 20190123
